FAERS Safety Report 20454901 (Version 2)
Quarter: 2022Q1

REPORT INFORMATION
  Report Type: Spontaneous
  Country: DE (occurrence: None)
  Receive Date: 20220210
  Receipt Date: 20220218
  Transmission Date: 20220423
  Serious: Yes (Other)
  Sender: FDA-Public Use
  Company Number: 2022A058998

PATIENT
  Age: 81 Year
  Sex: Female
  Weight: 51 kg

DRUGS (1)
  1. CALQUENCE [Suspect]
     Active Substance: ACALABRUTINIB
     Indication: Chronic lymphocytic leukaemia
     Dosage: 200.0MG UNKNOWN
     Route: 048
     Dates: start: 20211202, end: 20220128

REACTIONS (3)
  - Hepatic failure [Not Recovered/Not Resolved]
  - Cholecystitis [Unknown]
  - Off label use [Recovered/Resolved]
